FAERS Safety Report 14302351 (Version 1)
Quarter: 2017Q4

REPORT INFORMATION
  Report Type: Spontaneous
  Country: US (occurrence: US)
  Receive Date: 20171219
  Receipt Date: 20171219
  Transmission Date: 20180321
  Serious: No
  Sender: FDA-Public Use
  Company Number: US-SUPERNUS PHARMACEUTICALS, INC.-2017SUP00054

PATIENT
  Sex: Male
  Weight: 106.58 kg

DRUGS (12)
  1. WELLBUTRIN [Concomitant]
     Active Substance: BUPROPION HYDROCHLORIDE
     Dosage: 2X/DAY
  2. TROKENDI XR [Suspect]
     Active Substance: TOPIRAMATE
     Indication: VESTIBULAR MIGRAINE
     Dosage: 100 MG, 2X/DAY
     Route: 048
     Dates: start: 201506, end: 20170222
  3. VITAMIN D [Concomitant]
     Active Substance: CHOLECALCIFEROL
  4. TROKENDI XR [Suspect]
     Active Substance: TOPIRAMATE
     Indication: DIZZINESS
  5. TROKENDI XR [Suspect]
     Active Substance: TOPIRAMATE
     Indication: VESTIBULAR MIGRAINE
     Dosage: 50 MG, 2X/DAY
     Route: 048
     Dates: start: 201506, end: 20170222
  6. LOW DOSE ASPIRIN [Concomitant]
     Active Substance: ASPIRIN
     Dosage: 1X/DAY
  7. TROKENDI XR [Suspect]
     Active Substance: TOPIRAMATE
     Indication: VESTIBULAR MIGRAINE
     Dosage: 25 MG, 1X/DAY EACH PM
     Route: 048
     Dates: start: 201506, end: 20170222
  8. TROKENDI XR [Suspect]
     Active Substance: TOPIRAMATE
     Indication: DIZZINESS
  9. TROKENDI XR [Suspect]
     Active Substance: TOPIRAMATE
     Indication: DIZZINESS
  10. DIAZEPAM. [Concomitant]
     Active Substance: DIAZEPAM
     Route: 054
  11. VALIUM [Concomitant]
     Active Substance: DIAZEPAM
     Indication: DIZZINESS
  12. MULTIVITAMIN [Concomitant]
     Active Substance: VITAMINS

REACTIONS (6)
  - Vertigo [Recovered/Resolved]
  - Therapeutic response unexpected [Recovering/Resolving]
  - Off label use [Recovered/Resolved]
  - Dysarthria [Recovered/Resolved]
  - Bradyphrenia [Recovered/Resolved]
  - Drug ineffective for unapproved indication [Recovered/Resolved]
